FAERS Safety Report 9526213 (Version 1)
Quarter: 2013Q3

REPORT INFORMATION
  Report Type: Spontaneous
  Country: FR (occurrence: FR)
  Receive Date: 20130916
  Receipt Date: 20130916
  Transmission Date: 20140515
  Serious: Yes (Hospitalization)
  Sender: FDA-Public Use
  Company Number: FR-PFIZER INC-2013261799

PATIENT
  Age: 83 Year
  Sex: Male

DRUGS (13)
  1. TYGACIL [Suspect]
     Indication: OSTEITIS
     Dosage: 150 MG, DAILY
     Dates: start: 20110712, end: 20110811
  2. ROCEPHINE [Suspect]
     Indication: OSTEITIS
     Dosage: UNK
     Route: 058
     Dates: start: 20110712, end: 20110811
  3. PERINDOPRIL [Concomitant]
     Dosage: 2 MG, DAILY
     Route: 048
  4. TEMERIT [Concomitant]
     Route: 048
  5. AMLOR [Concomitant]
     Dosage: 5 MG, DAILY
     Route: 048
  6. LASILIX [Concomitant]
     Dosage: 20 MG, DAILY
     Route: 048
  7. KARDEGIC [Concomitant]
  8. TAHOR [Concomitant]
     Dosage: UNK
     Dates: end: 20110811
  9. AVODART [Concomitant]
  10. DEDROGYL [Concomitant]
  11. CALCIPARIN [Concomitant]
  12. LANTUS [Concomitant]
  13. ZOPICLONE [Concomitant]
     Dosage: UNK
     Dates: end: 20110811

REACTIONS (2)
  - Drug-induced liver injury [Recovered/Resolved]
  - Pancreatitis [Recovered/Resolved]
